FAERS Safety Report 23260694 (Version 2)
Quarter: 2023Q4

REPORT INFORMATION
  Report Type: Spontaneous
  Country: JP (occurrence: JP)
  Receive Date: 20231205
  Receipt Date: 20231207
  Transmission Date: 20240109
  Serious: Yes (Other)
  Sender: FDA-Public Use
  Company Number: JP-JNJFOC-20231183044

PATIENT
  Age: 81 Year
  Sex: Male

DRUGS (1)
  1. IMBRUVICA [Suspect]
     Active Substance: IBRUTINIB
     Indication: Chronic lymphocytic leukaemia
     Dosage: IBRUTINIB:140MG
     Route: 048
     Dates: start: 20231031

REACTIONS (3)
  - Macular hole [Unknown]
  - Retinal haemorrhage [Unknown]
  - Epiretinal membrane [Unknown]

NARRATIVE: CASE EVENT DATE: 20230101
